FAERS Safety Report 8553156-3 (Version None)
Quarter: 2012Q3

REPORT INFORMATION
  Report Type: 
  Country: None (occurrence: None)
  Receive Date: 20120731
  Receipt Date: 20120724
  Transmission Date: 20120928
  Serious: Yes (Death)
  Sender: FDA-Public Use
  Company Number: US-PFIZER INC-2012180013

PATIENT
  Sex: Female

DRUGS (1)
  1. REVATIO [Suspect]
     Dosage: 40 MG, 3X/DAY
     Dates: start: 20101027, end: 20120628

REACTIONS (2)
  - DISEASE PROGRESSION [None]
  - PANCREATIC CARCINOMA [None]
